FAERS Safety Report 15418339 (Version 2)
Quarter: 2018Q4

REPORT INFORMATION
  Report Type: Spontaneous
  Country: PT (occurrence: PT)
  Receive Date: 20180924
  Receipt Date: 20181005
  Transmission Date: 20190204
  Serious: Yes (Life-Threatening, Hospitalization, Other)
  Sender: FDA-Public Use
  Company Number: IND-PT-009507513-1809PRT007630

PATIENT
  Age: 51 Year
  Sex: Male

DRUGS (3)
  1. CORTISONE [Concomitant]
     Active Substance: CORTISONE\HYDROCORTISONE
     Indication: PSORIASIS
     Dosage: UNK
  2. EXXIV 90 MG FILM-COATED TABLETS [Suspect]
     Active Substance: ETORICOXIB
     Indication: PROPHYLAXIS
     Dosage: 90 MG, DAILY
     Route: 048
     Dates: start: 20180802, end: 20180807
  3. CLAVAMOX [Suspect]
     Active Substance: AMOXICILLIN\CLAVULANATE POTASSIUM
     Indication: ANTIBIOTIC PROPHYLAXIS
     Dosage: 1 DF, EVERY 12 HOURS
     Route: 048
     Dates: start: 20180802, end: 20180807

REACTIONS (3)
  - Product use in unapproved indication [Recovered/Resolved]
  - Hypersensitivity [Recovering/Resolving]
  - Off label use [Recovered/Resolved]

NARRATIVE: CASE EVENT DATE: 20180802
